FAERS Safety Report 7657374-8 (Version None)
Quarter: 2011Q3

REPORT INFORMATION
  Report Type: 
  Country: None (occurrence: None)
  Receive Date: 20110804
  Receipt Date: 20110725
  Transmission Date: 20111222
  Serious: Yes (Hospitalization)
  Sender: FDA-Public Use
  Company Number: CA-PFIZER INC-2011168584

PATIENT
  Age: 45 Year
  Sex: Female

DRUGS (2)
  1. TRIPTORELIN PAMOATE [Suspect]
     Indication: BREAST CANCER FEMALE
     Dosage: 3.75 MG, UNK
     Route: 030
     Dates: start: 20100222
  2. EXEMESTANE [Suspect]
     Indication: BREAST CANCER FEMALE
     Dosage: 25 MG, 1X/DAY
     Route: 048
     Dates: start: 20100412

REACTIONS (1)
  - DIVERTICULITIS [None]
